FAERS Safety Report 9343594 (Version 1)
Quarter: 2013Q2

REPORT INFORMATION
  Report Type: Report from Study
  Country: AU (occurrence: AU)
  Receive Date: 20130612
  Receipt Date: 20130612
  Transmission Date: 20140414
  Serious: Yes (Hospitalization, Other)
  Sender: FDA-Public Use
  Company Number: AU-ROCHE-1235304

PATIENT
  Age: 58 Year
  Sex: Female

DRUGS (1)
  1. ACTEMRA [Suspect]
     Indication: RHEUMATOID ARTHRITIS
     Route: 042
     Dates: start: 20101215

REACTIONS (3)
  - Sternal fracture [Recovering/Resolving]
  - Rib fracture [Recovering/Resolving]
  - Road traffic accident [Unknown]
